FAERS Safety Report 5782936-2 (Version None)
Quarter: 2008Q2

REPORT INFORMATION
  Report Type: 
  Country: None (occurrence: None)
  Receive Date: 20080619
  Receipt Date: 20080619
  Transmission Date: 20081010
  Serious: Yes (Life-Threatening)
  Sender: FDA-Public Use
  Company Number: None

PATIENT
  Sex: Male
  Weight: 78.4723 kg

DRUGS (1)
  1. DIGITEK (MYLAN PHARMACEUTICALS) [Suspect]
     Indication: CARDIAC FAILURE
     Dosage: 250 MG DAILY (1)
     Dates: start: 20001108

REACTIONS (1)
  - NAUSEA [None]
